FAERS Safety Report 6061477-1 (Version None)
Quarter: 2009Q1

REPORT INFORMATION
  Report Type: 
  Country: None (occurrence: None)
  Receive Date: 20090129
  Receipt Date: 20090129
  Transmission Date: 20090719
  Serious: Yes (Other)
  Sender: FDA-Public Use
  Company Number: None

PATIENT
  Age: 31 Year
  Sex: Female

DRUGS (1)
  1. XOLAIR [Suspect]
     Indication: ASTHMA
     Dosage: 150MG QMONTH SQ
     Route: 058
     Dates: start: 20081001, end: 20090115

REACTIONS (3)
  - LOSS OF CONSCIOUSNESS [None]
  - MYALGIA [None]
  - SYNCOPE [None]
